FAERS Safety Report 16384600 (Version 1)
Quarter: 2019Q3

REPORT INFORMATION
  Report Type: Spontaneous
  Country: US (occurrence: US)
  Receive Date: 20190531
  Receipt Date: 20190531
  Transmission Date: 20191004
  Serious: Yes (Life-Threatening)
  Sender: FDA-Public Use
  Company Number: None

PATIENT
  Age: 44 Year
  Sex: Female
  Weight: 76.95 kg

DRUGS (1)
  1. OCREVUS [Suspect]
     Active Substance: OCRELIZUMAB
     Indication: MULTIPLE SCLEROSIS
     Dates: start: 20190430, end: 20190430

REACTIONS (5)
  - Pruritus [None]
  - Throat irritation [None]
  - Eye swelling [None]
  - Eye pruritus [None]
  - Throat tightness [None]

NARRATIVE: CASE EVENT DATE: 20190430
